FAERS Safety Report 13145682 (Version 2)
Quarter: 2017Q1

REPORT INFORMATION
  Report Type: Spontaneous
  Country: US (occurrence: US)
  Receive Date: 20170124
  Receipt Date: 20170210
  Transmission Date: 20170428
  Serious: Yes (Death)
  Sender: FDA-Public Use
  Company Number: US-TAIHO ONCOLOGY INC-EU-2017-00087

PATIENT
  Age: 40 Year
  Sex: Female

DRUGS (24)
  1. PROCARDIA [Concomitant]
     Active Substance: NIFEDIPINE
     Dosage: NI
  2. SIMVASTATIN. [Concomitant]
     Active Substance: SIMVASTATIN
     Dosage: NI
  3. OXYCODONE [Concomitant]
     Active Substance: OXYCODONE
     Dosage: NI
  4. CLONIDINE. [Concomitant]
     Active Substance: CLONIDINE
     Dosage: NI
  5. KLOR-CON [Concomitant]
     Active Substance: POTASSIUM CHLORIDE
     Dosage: NI
  6. LOPRESSOR [Concomitant]
     Active Substance: METOPROLOL TARTRATE
     Dosage: NI
  7. HYDROCORTISONE. [Concomitant]
     Active Substance: HYDROCORTISONE
     Dosage: NI
  8. LONSURF [Suspect]
     Active Substance: TIPIRACIL HYDROCHLORIDE\TRIFLURIDINE
     Indication: COLON CANCER
     Route: 048
  9. GABAPENTIN. [Concomitant]
     Active Substance: GABAPENTIN
     Dosage: NI
  10. GLYCOLAX [Concomitant]
     Active Substance: POLYETHYLENE GLYCOL 3350
     Dosage: NI
  11. ONDANSETRON [Concomitant]
     Active Substance: ONDANSETRON
     Dosage: NI
  12. OXYCONTIN [Concomitant]
     Active Substance: OXYCODONE HYDROCHLORIDE
     Dosage: NI
  13. IMODIUM [Concomitant]
     Active Substance: LOPERAMIDE HYDROCHLORIDE
     Dosage: NI
  14. LISINOPRIL. [Concomitant]
     Active Substance: LISINOPRIL
     Dosage: NI
  15. DEXAMETHASONE. [Concomitant]
     Active Substance: DEXAMETHASONE
     Dosage: NI
  16. COLACE [Concomitant]
     Active Substance: DOCUSATE SODIUM
     Dosage: NI
  17. EMLA [Concomitant]
     Active Substance: LIDOCAINE\PRILOCAINE
  18. TEMOVATE [Concomitant]
     Active Substance: CLOBETASOL PROPIONATE
     Dosage: NI
  19. PROCHLORPERAZINE MALEATE. [Concomitant]
     Active Substance: PROCHLORPERAZINE MALEATE
     Dosage: NI
  20. KENALOG [Concomitant]
     Active Substance: TRIAMCINOLONE ACETONIDE
     Dosage: NI
  21. HYDROCHLOROTHIAZIDE/LISINOPRIL [Concomitant]
     Dosage: NI
  22. ZAROXOLYN [Concomitant]
     Active Substance: METOLAZONE
     Dosage: NI
  23. FENTANYL. [Concomitant]
     Active Substance: FENTANYL
     Dosage: NI
  24. MYCOSTATIN [Concomitant]
     Active Substance: NYSTATIN
     Dosage: NI

REACTIONS (1)
  - Disease progression [Fatal]

NARRATIVE: CASE EVENT DATE: 20161120
